FAERS Safety Report 5078309-0 (Version None)
Quarter: 2006Q3

REPORT INFORMATION
  Report Type: 
  Country: None (occurrence: None)
  Receive Date: 20060811
  Receipt Date: 20060807
  Transmission Date: 20061208
  Serious: Yes (Other)
  Sender: FDA-Public Use
  Company Number: GB-BRISTOL-MYERS SQUIBB COMPANY-13467659

PATIENT
  Age: 45 Year
  Sex: Male

DRUGS (5)
  1. EFAVIRENZ [Suspect]
     Indication: HIV INFECTION
     Route: 048
  2. COMBIVIR [Suspect]
     Indication: HIV INFECTION
     Route: 048
  3. ABACAVIR [Concomitant]
     Route: 048
  4. LAMIVUDINE [Concomitant]
     Route: 048
  5. NEVIRAPINE [Concomitant]
     Route: 048

REACTIONS (2)
  - CARDIOMYOPATHY [None]
  - HALLUCINATION [None]
